FAERS Safety Report 8505087-2 (Version None)
Quarter: 2012Q3

REPORT INFORMATION
  Report Type: 
  Country: None (occurrence: None)
  Receive Date: 20120702
  Receipt Date: 20120615
  Transmission Date: 20120928
  Serious: Yes (Other)
  Sender: FDA-Public Use
  Company Number: JPI-P-022095

PATIENT
  Age: 46 Year
  Sex: Female

DRUGS (2)
  1. XYREM [Suspect]
     Indication: PRODUCT USED FOR UNKNOWN INDICATION
     Dosage: 4.5 GM (2.25 GM, 2 IN 1 D), ORAL 9 GM (4.5 GM, 2 IN 1 D), ORAL
     Route: 048
     Dates: start: 20081112
  2. XYREM [Suspect]
     Indication: PRODUCT USED FOR UNKNOWN INDICATION
     Dosage: 4.5 GM (2.25 GM, 2 IN 1 D), ORAL 9 GM (4.5 GM, 2 IN 1 D), ORAL
     Route: 048
     Dates: start: 20051207

REACTIONS (14)
  - NAUSEA [None]
  - OEDEMA PERIPHERAL [None]
  - FLUID RETENTION [None]
  - DISTURBANCE IN ATTENTION [None]
  - MUSCULAR WEAKNESS [None]
  - GAIT DISTURBANCE [None]
  - FEELING ABNORMAL [None]
  - INITIAL INSOMNIA [None]
  - INSOMNIA [None]
  - NIGHT SWEATS [None]
  - PAIN IN EXTREMITY [None]
  - HEAD INJURY [None]
  - THERAPEUTIC RESPONSE DECREASED [None]
  - BREAST CANCER [None]
